FAERS Safety Report 4597314-1 (Version None)
Quarter: 2005Q1

REPORT INFORMATION
  Report Type: 
  Country: None (occurrence: None)
  Receive Date: 20050303
  Receipt Date: 20040415
  Transmission Date: 20050727
  Serious: No
  Sender: FDA-Public Use
  Company Number: US-GLAXOSMITHKLINE-A0507256A

PATIENT
  Age: 21 Year
  Sex: Male

DRUGS (1)
  1. DEXEDRINE [Suspect]
     Indication: ILL-DEFINED DISORDER
     Dosage: 2TAB THREE TIMES PER DAY
     Route: 048

REACTIONS (2)
  - INSOMNIA [None]
  - PERSONALITY CHANGE [None]
